FAERS Safety Report 11907998 (Version 1)
Quarter: 2016Q1

REPORT INFORMATION
  Report Type: Spontaneous
  Country: US (occurrence: US)
  Receive Date: 20160111
  Receipt Date: 20160111
  Transmission Date: 20160526
  Serious: Yes (Death)
  Sender: FDA-Public Use
  Company Number: US-MEDA-2016010060

PATIENT
  Age: 43 Year
  Sex: Female

DRUGS (5)
  1. HYDROCODONE [Suspect]
     Active Substance: HYDROCODONE
  2. CARISOPRODOL. [Suspect]
     Active Substance: CARISOPRODOL
  3. ETHANOL [Suspect]
     Active Substance: ALCOHOL
  4. AMITRIPTYLINE [Suspect]
     Active Substance: AMITRIPTYLINE
  5. DIAZEPAM. [Suspect]
     Active Substance: DIAZEPAM

REACTIONS (1)
  - Death [Fatal]

NARRATIVE: CASE EVENT DATE: 2014
